FAERS Safety Report 9806640 (Version 1)
Quarter: 2014Q1

REPORT INFORMATION
  Report Type: Spontaneous
  Country: US (occurrence: US)
  Receive Date: 20140109
  Receipt Date: 20140109
  Transmission Date: 20141002
  Serious: No
  Sender: FDA-Public Use
  Company Number: US-ABBVIE-13P-163-1105757-00

PATIENT
  Age: 33 Year
  Sex: Male

DRUGS (3)
  1. VICODIN [Suspect]
     Indication: PAIN
  2. CELEBREX [Suspect]
     Indication: PAIN
  3. LYRICA [Suspect]
     Indication: PAIN

REACTIONS (5)
  - Feeling abnormal [Unknown]
  - Lethargy [Unknown]
  - Malaise [Unknown]
  - Gastric ulcer [Unknown]
  - Oesophageal ulcer [Unknown]
